FAERS Safety Report 17555912 (Version 5)
Quarter: 2025Q2

REPORT INFORMATION
  Report Type: Spontaneous
  Country: NL (occurrence: NL)
  Receive Date: 20200318
  Receipt Date: 20250403
  Transmission Date: 20250716
  Serious: Yes (Death, Life-Threatening, Hospitalization, Other)
  Sender: MYLAN
  Company Number: NL-PFIZER INC-2014262445

PATIENT
  Age: 77 Year
  Sex: Male

DRUGS (14)
  1. VANCOMYCIN [Suspect]
     Active Substance: VANCOMYCIN
     Indication: Brain abscess
  2. VANCOMYCIN [Suspect]
     Active Substance: VANCOMYCIN
     Indication: Streptococcal infection
  3. CLARITHROMYCIN [Suspect]
     Active Substance: CLARITHROMYCIN
     Indication: Headache
  4. CLARITHROMYCIN [Suspect]
     Active Substance: CLARITHROMYCIN
     Indication: Headache
     Dosage: 500 MILLIGRAM, QD (250 MG, BID)
  5. CLARITHROMYCIN [Suspect]
     Active Substance: CLARITHROMYCIN
     Indication: Night sweats
  6. CLARITHROMYCIN [Suspect]
     Active Substance: CLARITHROMYCIN
     Indication: Confusional state
     Dosage: 250 MILLIGRAM, BID
  7. AMOXICILLIN [Suspect]
     Active Substance: AMOXICILLIN
     Indication: Brain abscess
     Dosage: 2 GRAM, (EVERY 4 HRS), (2 G, SIX TIMES DAILY, INTERVAL: 1) (12 GRAM, ONCE A DAY)
  8. METRONIDAZOLE [Suspect]
     Active Substance: METRONIDAZOLE
     Indication: Bacterial infection
     Dosage: 500 MG, 3X/DAY (500 MG, TID)
  9. METRONIDAZOLE [Suspect]
     Active Substance: METRONIDAZOLE
     Indication: Brain abscess
  10. CEFTRIAXONE SODIUM [Suspect]
     Active Substance: CEFTRIAXONE SODIUM
     Indication: Product used for unknown indication
  11. CEFTRIAXONE SODIUM [Suspect]
     Active Substance: CEFTRIAXONE SODIUM
     Indication: Brain abscess
     Dosage: 2 G, 2X/DAY (2 G, BID)
  12. CEFTRIAXONE SODIUM [Suspect]
     Active Substance: CEFTRIAXONE SODIUM
     Indication: Confusional state
  13. PENICILLIN G [Suspect]
     Active Substance: PENICILLIN G
     Indication: Brain abscess
     Dosage: 12 INTERNATIONAL UNIT, QD (12 MILLION IU, QD)
  14. PENICILLIN [Suspect]
     Active Substance: PENICILLIN
     Indication: Brain abscess
     Dosage: 12 INTERNATIONAL UNIT, QD

REACTIONS (15)
  - Acute kidney injury [Fatal]
  - Drug reaction with eosinophilia and systemic symptoms [Fatal]
  - Multiple organ dysfunction syndrome [Fatal]
  - Respiratory failure [Fatal]
  - Haemodynamic instability [Fatal]
  - Acute hepatic failure [Fatal]
  - Renal failure [Fatal]
  - Jaundice [Fatal]
  - Dyspnoea [Fatal]
  - Pruritus [Fatal]
  - Pyrexia [Fatal]
  - Disorientation [Fatal]
  - Oliguria [Fatal]
  - Skin exfoliation [Fatal]
  - Erythema [Fatal]
